FAERS Safety Report 13717261 (Version 2)
Quarter: 2017Q3

REPORT INFORMATION
  Report Type: Report from Study
  Country: FR (occurrence: FR)
  Receive Date: 20170705
  Receipt Date: 20170719
  Transmission Date: 20171127
  Serious: Yes (Hospitalization)
  Sender: FDA-Public Use
  Company Number: FR-JNJFOC-20170628075

PATIENT
  Age: 53 Year
  Sex: Female
  Weight: 45 kg

DRUGS (4)
  1. METOTREXATE [Concomitant]
     Active Substance: METHOTREXATE SODIUM
     Route: 065
  2. STELARA [Suspect]
     Active Substance: USTEKINUMAB
     Indication: PSORIASIS
     Route: 058
     Dates: start: 20160504, end: 20161219
  3. CICLOSPORINE [Concomitant]
     Active Substance: CYCLOSPORINE
     Route: 065
     Dates: start: 1990
  4. TRETINOIN. [Concomitant]
     Active Substance: TRETINOIN
     Route: 065

REACTIONS (5)
  - Osteoporotic fracture [Unknown]
  - Psoriatic arthropathy [Recovered/Resolved]
  - Spinal fracture [Unknown]
  - Spinal column stenosis [Unknown]
  - Osteoarthritis [Unknown]

NARRATIVE: CASE EVENT DATE: 20161219
